FAERS Safety Report 6099970-8 (Version None)
Quarter: 2009Q1

REPORT INFORMATION
  Report Type: 
  Country: None (occurrence: None)
  Receive Date: 20090227
  Receipt Date: 20090227
  Transmission Date: 20090719
  Serious: No
  Sender: FDA-Public Use
  Company Number: None

PATIENT
  Sex: Female

DRUGS (1)
  1. PERCOCET [Suspect]
     Indication: RHEUMATOID ARTHRITIS
     Dosage: 10/325 ONCE PO QID
     Route: 048

REACTIONS (6)
  - DRUG EFFECT DECREASED [None]
  - NAUSEA [None]
  - PRODUCT QUALITY ISSUE [None]
  - RASH [None]
  - URTICARIA [None]
  - VOMITING [None]
